FAERS Safety Report 6718441-6 (Version None)
Quarter: 2010Q2

REPORT INFORMATION
  Report Type: 
  Country: None (occurrence: None)
  Receive Date: 20100510
  Receipt Date: 20090515
  Transmission Date: 20101027
  Serious: Yes (Other)
  Sender: FDA-Public Use
  Company Number: US-PFIZER INC-2009207931

PATIENT
  Sex: Female
  Weight: 80.726 kg

DRUGS (9)
  1. CHANTIX [Suspect]
     Indication: SMOKING CESSATION THERAPY
     Dosage: UNK
     Route: 048
     Dates: start: 20090101
  2. CHANTIX [Suspect]
     Indication: LUNG DISORDER
     Dosage: UNK
     Dates: start: 20090501
  3. GEODON [Suspect]
     Dosage: UNK
  4. LEXAPRO [Concomitant]
     Dosage: UNK
  5. KLONOPIN [Concomitant]
     Indication: ANXIETY
     Dosage: UNK
  6. LAMICTAL CD [Concomitant]
     Dosage: UNK
  7. BENADRYL [Concomitant]
     Dosage: UNK
  8. CLONAZEPAM [Concomitant]
     Indication: ANXIETY
     Dosage: UNK
  9. ROZEREM [Concomitant]
     Indication: SLEEP DISORDER
     Dosage: UNK

REACTIONS (8)
  - DEPRESSION [None]
  - MEMORY IMPAIRMENT [None]
  - PANIC DISORDER [None]
  - ROAD TRAFFIC ACCIDENT [None]
  - STRESS [None]
  - TARDIVE DYSKINESIA [None]
  - THINKING ABNORMAL [None]
  - VISION BLURRED [None]
